FAERS Safety Report 4957924-6 (Version None)
Quarter: 2006Q1

REPORT INFORMATION
  Report Type: 
  Country: None (occurrence: None)
  Receive Date: 20060127
  Receipt Date: 20050725
  Transmission Date: 20060701
  Serious: Yes (Hospitalization, Other)
  Sender: FDA-Public Use
  Company Number: 05-07-1295

PATIENT
  Age: 63 Year
  Sex: Male

DRUGS (1)
  1. CLOZAPINE [Suspect]
     Indication: PSYCHOTIC DISORDER
     Dosage: 25-75 MG QD ORAL
     Route: 048
     Dates: start: 20031001

REACTIONS (3)
  - ILEUS [None]
  - NAUSEA [None]
  - VOMITING [None]
